FAERS Safety Report 4541391-0 (Version None)
Quarter: 2004Q4

REPORT INFORMATION
  Report Type: 
  Country: None (occurrence: None)
  Receive Date: 20041229
  Receipt Date: 20041221
  Transmission Date: 20050328
  Serious: Yes (Life-Threatening, Hospitalization)
  Sender: FDA-Public Use
  Company Number: DE-MERCK-0412DEU00205

PATIENT
  Age: 82 Year
  Sex: Female

DRUGS (1)
  1. VIOXX [Suspect]
     Indication: PAIN
     Route: 048
     Dates: start: 20000616

REACTIONS (2)
  - CARDIAC FAILURE [None]
  - CORONARY ARTERY INSUFFICIENCY [None]
